FAERS Safety Report 24995167 (Version 1)
Quarter: 2025Q1

REPORT INFORMATION
  Report Type: Spontaneous
  Country: US (occurrence: US)
  Receive Date: 20250221
  Receipt Date: 20250221
  Transmission Date: 20250409
  Serious: No
  Sender: ROCHE
  Company Number: US-ROCHE-10000205209

PATIENT
  Age: 14 Year
  Sex: Male

DRUGS (1)
  1. ALTEPLASE [Suspect]
     Active Substance: ALTEPLASE
     Indication: Device occlusion
     Route: 065

REACTIONS (5)
  - Pruritus [Recovered/Resolved]
  - Lip swelling [Recovered/Resolved]
  - Tongue oedema [Recovered/Resolved]
  - Urticaria [Recovered/Resolved]
  - Respiratory rate increased [Recovered/Resolved]
